FAERS Safety Report 4740547-1 (Version None)
Quarter: 2005Q3

REPORT INFORMATION
  Report Type: 
  Country: None (occurrence: None)
  Receive Date: 20050810
  Receipt Date: 20050804
  Transmission Date: 20060218
  Serious: Yes (Other)
  Sender: FDA-Public Use
  Company Number: PHRM2005FR02225

PATIENT
  Age: 37 Year
  Sex: Female
  Weight: 115 kg

DRUGS (2)
  1. NISIS [Suspect]
     Dosage: 80 MG/DAY
     Route: 048
     Dates: start: 20010601, end: 20020101
  2. NISIS [Suspect]
     Dosage: 160 MG/DAY
     Route: 048
     Dates: start: 20020101, end: 20041018

REACTIONS (2)
  - DRUG EXPOSURE DURING PREGNANCY [None]
  - HABITUAL ABORTION [None]
